FAERS Safety Report 20560117 (Version 1)
Quarter: 2022Q1

REPORT INFORMATION
  Report Type: Report from Study
  Country: US (occurrence: US)
  Receive Date: 20220307
  Receipt Date: 20220307
  Transmission Date: 20220424
  Serious: No
  Sender: FDA-Public Use
  Company Number: US-KYOWAKIRIN-2022BKK002969

PATIENT

DRUGS (1)
  1. CRYSVITA [Suspect]
     Active Substance: BUROSUMAB-TWZA
     Indication: Hereditary hypophosphataemic rickets
     Dosage: 4 VIALS OF 20MG (DISCREPANT INFORMATION 30MG ALSO POSSIBLE) EVERY 28 DAYS
     Route: 058
     Dates: start: 201804

REACTIONS (4)
  - Insomnia [Recovered/Resolved]
  - Poor quality sleep [Recovered/Resolved]
  - Energy increased [Recovered/Resolved]
  - Therapeutic response unexpected [Recovered/Resolved]
